FAERS Safety Report 8888441 (Version 1)
Quarter: 2012Q4

REPORT INFORMATION
  Report Type: 
  Country: DK (occurrence: FR)
  Receive Date: 20121106
  Receipt Date: 20121106
  Transmission Date: 20130627
  Serious: Yes (Other)
  Sender: FDA-Public Use
  Company Number: FR-FRI-1000040117

PATIENT
  Age: 84 Year
  Sex: Female

DRUGS (8)
  1. CITALOPRAM [Suspect]
     Dosage: 20 mg
     Route: 048
     Dates: end: 201202
  2. ZYPREXA [Suspect]
     Dosage: 5 mg
     Route: 048
     Dates: end: 201202
  3. EXELON [Suspect]
     Dosage: 9000 mcg
     Route: 048
     Dates: end: 201202
  4. KARDEGIC [Concomitant]
     Route: 048
  5. COAPROVEL [Concomitant]
  6. LOVENOX [Concomitant]
     Dosage: 4000 IU anti-Xa/0.4 ml
     Route: 058
  7. IMOVANE [Concomitant]
     Route: 048
  8. PROTELOS [Concomitant]
     Route: 048

REACTIONS (4)
  - Extrapyramidal disorder [Recovering/Resolving]
  - Muscle rigidity [Recovering/Resolving]
  - Resting tremor [Recovering/Resolving]
  - Dysarthria [Recovering/Resolving]
